FAERS Safety Report 7435955-4 (Version None)
Quarter: 2011Q2

REPORT INFORMATION
  Report Type: 
  Country: None (occurrence: None)
  Receive Date: 20110425
  Receipt Date: 20110411
  Transmission Date: 20111010
  Serious: Yes (Other)
  Sender: FDA-Public Use
  Company Number: US-BAYER-2011-033276

PATIENT
  Age: 71 Year
  Sex: Female

DRUGS (3)
  1. ANTACIDS [Concomitant]
     Indication: DYSPEPSIA
  2. PEPTO BISMOL [Concomitant]
     Indication: DYSPEPSIA
  3. ALKA-SELTZER ORIGINAL [Suspect]
     Indication: DYSPEPSIA
     Dosage: 2 DF, ONCE
     Route: 048
     Dates: start: 20110411

REACTIONS (4)
  - ANXIETY [None]
  - PHARYNGEAL OEDEMA [None]
  - DYSPEPSIA [None]
  - OROPHARYNGEAL DISCOMFORT [None]
